FAERS Safety Report 19065357 (Version 4)
Quarter: 2021Q2

REPORT INFORMATION
  Report Type: Spontaneous
  Country: US (occurrence: US)
  Receive Date: 20210327
  Receipt Date: 20210503
  Transmission Date: 20210717
  Serious: Yes (Death, Life-Threatening, Hospitalization, Other)
  Sender: FDA-Public Use
  Company Number: US-009507513-2103USA006969

PATIENT
  Age: 70 Year
  Sex: Male
  Weight: 112 kg

DRUGS (7)
  1. PSYLLIUM HUSK. [Concomitant]
     Active Substance: PSYLLIUM HUSK
     Route: 048
  2. ALLOPURINOL. [Concomitant]
     Active Substance: ALLOPURINOL
     Dosage: 150 MILLIGRAM
     Route: 048
  3. MAGNESIUM OXIDE. [Concomitant]
     Active Substance: MAGNESIUM OXIDE
     Indication: BLOOD MAGNESIUM DECREASED
     Dosage: 400 MILLIGRAM TABLET ONCE DAILY
     Route: 048
  4. LISINOPRIL. [Concomitant]
     Active Substance: LISINOPRIL
     Indication: HYPERTENSION
     Dosage: 10 MILLIGRAM, ONCE DAILY
     Route: 048
  5. KEYTRUDA [Suspect]
     Active Substance: PEMBROLIZUMAB
     Indication: BLADDER TRANSITIONAL CELL CARCINOMA METASTATIC
     Dosage: 200 MILLIGRAM, Q3W
     Route: 042
     Dates: start: 20181005, end: 20181005
  6. COMPAZINE [Concomitant]
     Active Substance: PROCHLORPERAZINE MALEATE
     Indication: NAUSEA
     Dosage: 10 MILLIGRAM, EVERY 6 HOURS AS NEEDED
     Route: 048
  7. ZOFRAN [Concomitant]
     Active Substance: ONDANSETRON HYDROCHLORIDE
     Indication: NAUSEA
     Dosage: 8 MILLIGRAM, UNDER THE TONGUE EVERY 8 HOURS AS NEEDED
     Route: 060

REACTIONS (13)
  - Lactic acidosis [Not Recovered/Not Resolved]
  - Myasthenia gravis [Fatal]
  - Immune-mediated myocarditis [Fatal]
  - Multiple organ dysfunction syndrome [Fatal]
  - Leukocytosis [Unknown]
  - Hypotension [Unknown]
  - Cytomegalovirus test positive [Unknown]
  - Limb mass [Unknown]
  - Immune-mediated myositis [Fatal]
  - Acute kidney injury [Not Recovered/Not Resolved]
  - Culture urine positive [Unknown]
  - Diverticulum intestinal [Unknown]
  - Spinal muscular atrophy [Unknown]

NARRATIVE: CASE EVENT DATE: 201810
